FAERS Safety Report 18253594 (Version 1)
Quarter: 2020Q3

REPORT INFORMATION
  Report Type: Spontaneous
  Country: AU (occurrence: AU)
  Receive Date: 20200910
  Receipt Date: 20200910
  Transmission Date: 20201103
  Serious: Yes (Other)
  Sender: FDA-Public Use
  Company Number: AU-PFIZER INC-2020348079

PATIENT
  Age: 34 Year
  Sex: Female

DRUGS (1)
  1. CYTOTEC [Suspect]
     Active Substance: MISOPROSTOL
     Dosage: UNK
     Route: 067

REACTIONS (6)
  - Off label use [Unknown]
  - Altered state of consciousness [Unknown]
  - Pyrexia [Unknown]
  - Product use issue [Unknown]
  - Tachycardia [Unknown]
  - Confusional state [Unknown]

NARRATIVE: CASE EVENT DATE: 20200719
